FAERS Safety Report 4634578-X (Version None)
Quarter: 2005Q2

REPORT INFORMATION
  Report Type: 
  Country: None (occurrence: None)
  Receive Date: 20050411
  Receipt Date: 20050331
  Transmission Date: 20051028
  Serious: Yes (Death)
  Sender: FDA-Public Use
  Company Number: 2005-04-0025

PATIENT
  Age: 52 Year
  Sex: Male
  Weight: 67 kg

DRUGS (10)
  1. INTERFERON ALFA-2B INJECTABLE SOLUTION [Suspect]
     Indication: HEPATITIS C
     Dosage: 100 MCG QWK SUBCUTANEOUS
     Route: 058
     Dates: start: 20030215, end: 20050322
  2. RIBAVIRIN [Suspect]
     Indication: HEPATITIS C
     Dosage: 1000MG QD ORAL
     Route: 048
     Dates: start: 20050215, end: 20050323
  3. MORPHINE SULFATE [Concomitant]
  4. ARTHROTEC [Concomitant]
  5. AMITRIPTYLINE HCL TAB [Concomitant]
  6. HYDROCHLOROTHIAZIDE [Concomitant]
  7. ADALAT [Concomitant]
  8. LORAZEPAM [Concomitant]
  9. BACLOFEN [Concomitant]
  10. RANITIDINE [Concomitant]

REACTIONS (2)
  - BLOOD ALKALINE PHOSPHATASE INCREASED [None]
  - GAMMA-GLUTAMYLTRANSFERASE INCREASED [None]
